FAERS Safety Report 15250511 (Version 1)
Quarter: 2018Q3

REPORT INFORMATION
  Report Type: Spontaneous
  Country: US (occurrence: US)
  Receive Date: 20180716
  Receipt Date: 20180716
  Transmission Date: 20181010
  Serious: Yes (Hospitalization)
  Sender: FDA-Public Use
  Company Number: None

PATIENT
  Age: 70 Year
  Sex: Male

DRUGS (14)
  1. VSL PROBIOTIC [Concomitant]
  2. FLUTICASONE?VILANTEROL [Concomitant]
     Active Substance: FLUTICASONE FUROATE\VILANTEROL TRIFENATATE
  3. BUPROPION XL [Concomitant]
     Active Substance: BUPROPION
  4. LISINOPRIL. [Concomitant]
     Active Substance: LISINOPRIL
  5. METFORMIN [Concomitant]
     Active Substance: METFORMIN HYDROCHLORIDE
  6. FLUTICASONE FUROATE [Concomitant]
     Active Substance: FLUTICASONE FUROATE
  7. DRONABINOL. [Concomitant]
     Active Substance: DRONABINOL
  8. RIFAXIMIN. [Concomitant]
     Active Substance: RIFAXIMIN
  9. NEXAVAR [Suspect]
     Active Substance: SORAFENIB
     Indication: HEPATOCELLULAR CARCINOMA
     Route: 048
     Dates: start: 20171006, end: 20171130
  10. SITAGLIPTIN PHOSPHATE [Concomitant]
     Active Substance: SITAGLIPTIN PHOSPHATE
  11. AMLODIPINE [Concomitant]
     Active Substance: AMLODIPINE BESYLATE
  12. FAMOTIDINE. [Concomitant]
     Active Substance: FAMOTIDINE
  13. TAMSULOSIN [Concomitant]
     Active Substance: TAMSULOSIN
  14. NADOLOL. [Concomitant]
     Active Substance: NADOLOL

REACTIONS (4)
  - Weight decreased [None]
  - Diarrhoea [None]
  - Increased appetite [None]
  - Abdominal pain [None]

NARRATIVE: CASE EVENT DATE: 20171129
